FAERS Safety Report 23405800 (Version 3)
Quarter: 2024Q3

REPORT INFORMATION
  Report Type: Report from Study
  Country: CA (occurrence: CA)
  Receive Date: 20240116
  Receipt Date: 20240923
  Transmission Date: 20241017
  Serious: Yes (Death, Other)
  Sender: SANDOZ
  Company Number: CA-SANDOZ-SDZ2024CA003113

PATIENT
  Sex: Female

DRUGS (2)
  1. HYRIMOZ [Suspect]
     Active Substance: ADALIMUMAB-ADAZ
     Dosage: 40 MG, QW
     Route: 058
  2. HYRIMOZ [Suspect]
     Active Substance: ADALIMUMAB-ADAZ
     Indication: Crohn^s disease
     Dosage: 40 MG, PREFILLED PEN
     Route: 058
     Dates: start: 20220419

REACTIONS (7)
  - Death [Fatal]
  - Blood magnesium decreased [Unknown]
  - Blood potassium decreased [Unknown]
  - General physical health deterioration [Unknown]
  - Diarrhoea [Unknown]
  - Abdominal pain [Unknown]
  - Intestinal resection [Unknown]

NARRATIVE: CASE EVENT DATE: 20240101
